FAERS Safety Report 10495640 (Version 2)
Quarter: 2014Q4

REPORT INFORMATION
  Report Type: Spontaneous
  Country: US (occurrence: US)
  Receive Date: 20141003
  Receipt Date: 20141022
  Transmission Date: 20150528
  Serious: Yes (Other)
  Sender: FDA-Public Use
  Company Number: US-PFIZER INC-2014268769

PATIENT
  Age: 69 Year
  Sex: Male

DRUGS (20)
  1. NEURONTIN [Suspect]
     Active Substance: GABAPENTIN
     Indication: SPINAL CORD INFARCTION
     Dosage: UNK, DAILY
     Dates: start: 20140923, end: 201409
  2. PRIMIDONE. [Concomitant]
     Active Substance: PRIMIDONE
     Indication: SEIZURE
     Dosage: 750 MG, DAILY
  3. LOVENOX [Concomitant]
     Active Substance: ENOXAPARIN SODIUM
     Indication: CEREBROVASCULAR ACCIDENT
     Dosage: 0.4 ML ONE INJECTION, DAILY
  4. FOLIC ACID. [Concomitant]
     Active Substance: FOLIC ACID
     Dosage: 800 UG, DAILY
  5. NITROSTAT [Concomitant]
     Active Substance: NITROGLYCERIN
     Dosage: 0.4 MG, AS NEEDED
  6. MAGNESIUM OXIDE-400 [Concomitant]
     Dosage: 241.3 MG, DAILY
  7. NEURONTIN [Suspect]
     Active Substance: GABAPENTIN
     Dosage: UNK, 2X/DAY
     Dates: start: 201409, end: 20140927
  8. EFFIENT [Concomitant]
     Active Substance: PRASUGREL HYDROCHLORIDE
     Indication: MYOCARDIAL INFARCTION
     Dosage: 10 MG, DAILY
  9. LACTAID [Concomitant]
     Active Substance: LACTASE
     Dosage: UNK, AS NEEDED
  10. KEPPRA [Concomitant]
     Active Substance: LEVETIRACETAM
     Indication: SEIZURE
     Dosage: 1000 MG, DAILY
  11. COLACE [Concomitant]
     Active Substance: DOCUSATE SODIUM
     Dosage: 100 MG, AS NEEDED
  12. LIPITOR [Concomitant]
     Active Substance: ATORVASTATIN CALCIUM
     Indication: MYOCARDIAL INFARCTION
     Dosage: 40 MG, DAILY
  13. COREG [Concomitant]
     Active Substance: CARVEDILOL
     Indication: MYOCARDIAL INFARCTION
     Dosage: 6.25 MG, DAILY
  14. BABY ASPIRIN [Concomitant]
     Active Substance: ASPIRIN
     Dosage: 81 MG, DAILY
  15. VITAMIN C [Concomitant]
     Active Substance: ASCORBIC ACID
     Dosage: 100 MG, DAILY
  16. LACTAID [Concomitant]
     Active Substance: LACTASE
     Dosage: 20 DROPS IN A GALLON OF MILK
  17. NYSTATIN. [Concomitant]
     Active Substance: NYSTATIN
     Dosage: UNK, TWICE A DAY AS NEEDED
  18. VITAMIN E [Concomitant]
     Active Substance: .ALPHA.-TOCOPHEROL
     Dosage: 400 IU, DAILY
  19. MULTIVITAMINS W/MINERALS [Concomitant]
     Dosage: UNK, DAILY
  20. PROTONIX [Concomitant]
     Active Substance: PANTOPRAZOLE SODIUM
     Dosage: 40 MG, DAILY

REACTIONS (8)
  - Vision blurred [Not Recovered/Not Resolved]
  - Faecal incontinence [Unknown]
  - Dysstasia [Unknown]
  - Visual acuity reduced [Not Recovered/Not Resolved]
  - Pain in extremity [Unknown]
  - Discomfort [Unknown]
  - Ocular hyperaemia [Not Recovered/Not Resolved]
  - Urinary incontinence [Unknown]
